FAERS Safety Report 11446862 (Version 1)
Quarter: 2015Q3

REPORT INFORMATION
  Report Type: Spontaneous
  Country: US (occurrence: US)
  Receive Date: 20150831
  Receipt Date: 20150831
  Transmission Date: 20151125
  Serious: No
  Sender: FDA-Public Use
  Company Number: US-ELI_LILLY_AND_COMPANY-US200811005670

PATIENT
  Sex: Female

DRUGS (9)
  1. CYMBALTA [Suspect]
     Active Substance: DULOXETINE HYDROCHLORIDE
     Dosage: 30 MG, UNK
     Dates: start: 20081106, end: 20081120
  2. DIOVAN HCT [Concomitant]
     Active Substance: HYDROCHLOROTHIAZIDE\VALSARTAN
  3. CYMBALTA [Suspect]
     Active Substance: DULOXETINE HYDROCHLORIDE
     Indication: MAJOR DEPRESSION
     Dosage: 60 MG, UNK
     Dates: end: 20081106
  4. PREMARIN [Concomitant]
     Active Substance: ESTROGENS, CONJUGATED
  5. METOPROLOL [Concomitant]
     Active Substance: METOPROLOL
  6. SIMVASTATIN. [Concomitant]
     Active Substance: SIMVASTATIN
  7. CARDIZEM CD [Concomitant]
     Active Substance: DILTIAZEM HYDROCHLORIDE
  8. LEVOTHYROXINE. [Concomitant]
     Active Substance: LEVOTHYROXINE
  9. NORCO [Concomitant]
     Active Substance: ACETAMINOPHEN\HYDROCODONE BITARTRATE

REACTIONS (5)
  - Tinnitus [Not Recovered/Not Resolved]
  - Concussion [Unknown]
  - Memory impairment [Not Recovered/Not Resolved]
  - Lacrimation increased [Recovered/Resolved]
  - Head injury [Unknown]

NARRATIVE: CASE EVENT DATE: 20081120
